FAERS Safety Report 5071649-0 (Version None)
Quarter: 2006Q3

REPORT INFORMATION
  Report Type: 
  Country: None (occurrence: None)
  Receive Date: 20060803
  Receipt Date: 20060803
  Transmission Date: 20061208
  Serious: No
  Sender: FDA-Public Use
  Company Number: None

PATIENT
  Sex: Female
  Weight: 90.4 kg

DRUGS (1)
  1. PACLITAXEL [Suspect]
     Indication: BREAST CANCER
     Dosage: 120 MG WEEKLY IV
     Route: 042
     Dates: start: 20060720

REACTIONS (3)
  - BLOOD PRESSURE SYSTOLIC INCREASED [None]
  - COUGH [None]
  - DYSPNOEA [None]
